FAERS Safety Report 10685591 (Version 1)
Quarter: 2014Q4

REPORT INFORMATION
  Report Type: Spontaneous
  Country: US (occurrence: US)
  Receive Date: 20141231
  Receipt Date: 20141231
  Transmission Date: 20150529
  Serious: No
  Sender: FDA-Public Use
  Company Number: US-TARO-2014P1003925

PATIENT
  Age: 53 Year
  Sex: Male
  Weight: 86.18 kg

DRUGS (6)
  1. HYDROCORTISONE CREAM USP 2.5% [Suspect]
     Active Substance: HYDROCORTISONE
     Dosage: TID
     Route: 061
     Dates: start: 20140211, end: 20140311
  2. DURAGESIC [Concomitant]
     Active Substance: FENTANYL
     Dosage: 2 PATCHES QOD
     Dates: start: 1990
  3. NORCO [Concomitant]
     Active Substance: ACETAMINOPHEN\HYDROCODONE BITARTRATE
     Dates: start: 1990
  4. LYRICA [Concomitant]
     Active Substance: PREGABALIN
     Dates: start: 2010
  5. VALIUM [Concomitant]
     Active Substance: DIAZEPAM
     Dates: start: 2008
  6. CEPHALEXIN. [Concomitant]
     Active Substance: CEPHALEXIN
     Dates: start: 201402

REACTIONS (10)
  - Infection [Recovering/Resolving]
  - Cutis laxa [Not Recovered/Not Resolved]
  - Hair colour changes [Unknown]
  - Skin hypopigmentation [Not Recovered/Not Resolved]
  - Crying [Not Recovered/Not Resolved]
  - Pain [Not Recovered/Not Resolved]
  - Haemorrhage [Not Recovered/Not Resolved]
  - Off label use [Not Recovered/Not Resolved]
  - Hair growth abnormal [Not Recovered/Not Resolved]
  - Skin disorder [Not Recovered/Not Resolved]

NARRATIVE: CASE EVENT DATE: 201403
